FAERS Safety Report 7520920-9 (Version None)
Quarter: 2011Q2

REPORT INFORMATION
  Report Type: 
  Country: None (occurrence: None)
  Receive Date: 20110603
  Receipt Date: 20101126
  Transmission Date: 20111010
  Serious: Yes (Hospitalization)
  Sender: FDA-Public Use
  Company Number: JP-BAYER-200914434BYL

PATIENT
  Age: 81 Year
  Sex: Male
  Weight: 54 kg

DRUGS (8)
  1. NEXAVAR [Suspect]
     Indication: HEPATIC NEOPLASM MALIGNANT
     Dosage: 200 MG, QD
     Route: 048
     Dates: start: 20090727, end: 20090825
  2. LACTOMIN [Concomitant]
     Route: 048
  3. AMINO ACIDS [Concomitant]
     Route: 048
  4. FUROSEMIDE [Concomitant]
     Route: 048
  5. NEXAVAR [Suspect]
     Dosage: 200 MG, QD
     Route: 048
     Dates: start: 20090901, end: 20091104
  6. RABEPRAZOLE SODIUM [Concomitant]
     Route: 048
  7. GLYCYRRHIZIC ACID_DL-METHIONINE COMBINED DRUG [Concomitant]
     Route: 048
  8. URSODIOL [Concomitant]
     Route: 048

REACTIONS (2)
  - PALMAR-PLANTAR ERYTHRODYSAESTHESIA SYNDROME [None]
  - HEPATIC FUNCTION ABNORMAL [None]
